FAERS Safety Report 10006313 (Version 1)
Quarter: 2014Q1

REPORT INFORMATION
  Report Type: Report from Study
  Country: US (occurrence: US)
  Receive Date: 20140313
  Receipt Date: 20140313
  Transmission Date: 20141002
  Serious: Yes (Hospitalization)
  Sender: FDA-Public Use
  Company Number: US-SA-2014SA031988

PATIENT
  Sex: Female

DRUGS (6)
  1. DRONEDARONE [Suspect]
     Indication: PRODUCT USED FOR UNKNOWN INDICATION
     Route: 065
  2. DABIGATRAN [Interacting]
     Indication: PRODUCT USED FOR UNKNOWN INDICATION
     Route: 065
  3. PLAVIX [Concomitant]
  4. LISINOPRIL [Concomitant]
  5. ZANTAC [Concomitant]
  6. ASPIRIN [Concomitant]

REACTIONS (2)
  - Haemorrhage [Unknown]
  - Drug interaction [Unknown]
